FAERS Safety Report 8798081 (Version 1)
Quarter: 2012Q4

REPORT INFORMATION
  Report Type: 
  Country: US (occurrence: US)
  Receive Date: 20120920
  Receipt Date: 20120920
  Transmission Date: 20130627
  Serious: Yes (Hospitalization)
  Sender: FDA-Public Use
  Company Number: US-US-EMD SERONO, INC.-7160984

PATIENT
  Sex: Male

DRUGS (2)
  1. REBIF [Suspect]
     Indication: MULTIPLE SCLEROSIS
     Route: 058
     Dates: start: 20030505
  2. NITROFURNTOIN [Concomitant]
     Indication: BLADDER DISORDER

REACTIONS (2)
  - Urinary tract infection [Unknown]
  - Multiple sclerosis relapse [Unknown]
